FAERS Safety Report 15687274 (Version 1)
Quarter: 2018Q4

REPORT INFORMATION
  Report Type: Report from Study
  Country: None (occurrence: DE)
  Receive Date: 20181205
  Receipt Date: 20181205
  Transmission Date: 20190205
  Serious: Yes (Life-Threatening, Hospitalization, Other)
  Sender: FDA-Public Use
  Company Number: DE-ABBVIE-18K-062-2577129-00

PATIENT
  Age: 67 Year
  Sex: Male
  Weight: 82 kg

DRUGS (14)
  1. ALLOPURINOL. [Concomitant]
     Active Substance: ALLOPURINOL
     Indication: HYPERURICAEMIA
     Route: 048
  2. TRANEXAMIC ACID. [Concomitant]
     Active Substance: TRANEXAMIC ACID
     Route: 048
     Dates: start: 20181119, end: 201811
  3. HUMIRA [Suspect]
     Active Substance: ADALIMUMAB
     Indication: PSORIASIS
     Route: 058
     Dates: start: 20181025, end: 20181103
  4. COSENTYX [Suspect]
     Active Substance: SECUKINUMAB
     Indication: PSORIASIS
     Route: 058
     Dates: end: 20180927
  5. INSULIN [Concomitant]
     Active Substance: INSULIN NOS
     Indication: PRODUCT USED FOR UNKNOWN INDICATION
     Dates: start: 2009
  6. SPIRONOLACTON [Concomitant]
     Active Substance: SPIRONOLACTONE
     Indication: PRODUCT USED FOR UNKNOWN INDICATION
     Route: 048
     Dates: start: 2009
  7. MONO EMBOLEX [Concomitant]
     Active Substance: CERTOPARIN SODIUM
     Indication: PRODUCT USED FOR UNKNOWN INDICATION
     Dates: start: 201811
  8. TRANEXAMIC ACID. [Concomitant]
     Active Substance: TRANEXAMIC ACID
     Indication: PROPHYLAXIS
     Route: 042
     Dates: start: 201811, end: 201811
  9. CEFTAZIDIM [Suspect]
     Active Substance: CEFTAZIDIME
     Indication: ENDOPHTHALMITIS
     Route: 065
     Dates: start: 20181109, end: 201811
  10. FUROSEMID [Concomitant]
     Active Substance: FUROSEMIDE
     Indication: PRODUCT USED FOR UNKNOWN INDICATION
     Route: 048
     Dates: start: 2009
  11. MOVICOL [Concomitant]
     Active Substance: POLYETHYLENE GLYCOL 3350\POTASSIUM CHLORIDE\SODIUM BICARBONATE\SODIUM CHLORIDE
     Indication: CONSTIPATION PROPHYLAXIS
     Dates: start: 201811
  12. PANTOPRAZOL [Concomitant]
     Active Substance: PANTOPRAZOLE SODIUM
     Indication: GASTRITIS
     Route: 048
     Dates: start: 20181119, end: 2018
  13. PANTOPRAZOL [Concomitant]
     Active Substance: PANTOPRAZOLE SODIUM
     Indication: OESOPHAGITIS
     Dates: start: 2018
  14. FRAGMIN P FORTE [Concomitant]
     Active Substance: DALTEPARIN SODIUM
     Indication: THROMBOSIS PROPHYLAXIS
     Dates: start: 201811, end: 201811

REACTIONS (18)
  - Vitreous prolapse [Unknown]
  - Intraocular pressure increased [Unknown]
  - Polyp [Unknown]
  - Endophthalmitis [Recovered/Resolved with Sequelae]
  - Hiatus hernia [Unknown]
  - Erosive oesophagitis [Unknown]
  - Open angle glaucoma [Unknown]
  - Haematemesis [Unknown]
  - Pancytopenia [Unknown]
  - Ocular fistula [Unknown]
  - Gastritis [Unknown]
  - Inflammatory marker increased [Unknown]
  - Reactive gastropathy [Unknown]
  - Nausea [Unknown]
  - Eye disorder [Unknown]
  - Streptococcal infection [Unknown]
  - Eye pain [Unknown]
  - Haemolysis [Unknown]

NARRATIVE: CASE EVENT DATE: 2018
